FAERS Safety Report 16592168 (Version 2)
Quarter: 2019Q3

REPORT INFORMATION
  Report Type: Spontaneous
  Country: US (occurrence: US)
  Receive Date: 20190718
  Receipt Date: 20190724
  Transmission Date: 20191004
  Serious: Yes (Other)
  Sender: FDA-Public Use
  Company Number: US-PFIZER INC-2019304767

PATIENT
  Age: 15 Month
  Sex: Male
  Weight: 9.9 kg

DRUGS (2)
  1. BICILLIN C-R 900/300 [Suspect]
     Active Substance: PENICILLIN G BENZATHINE\PENICILLIN G PROCAINE
     Indication: TONSILLITIS
     Dosage: 600000 IU, UNK (2 ML, OF A MIXTURE OF BENZATHINE PENICILLIN G AND PROCAINE PENICILLIN G)
     Route: 013
     Dates: start: 1965
  2. BICILLIN C-R 900/300 [Suspect]
     Active Substance: PENICILLIN G BENZATHINE\PENICILLIN G PROCAINE
     Indication: OTITIS MEDIA

REACTIONS (4)
  - Vasospasm [Unknown]
  - Myelitis transverse [Unknown]
  - Incorrect route of product administration [Unknown]
  - Off label use [Unknown]

NARRATIVE: CASE EVENT DATE: 1965
